FAERS Safety Report 14726573 (Version 1)
Quarter: 2018Q2

REPORT INFORMATION
  Report Type: Spontaneous
  Country: US (occurrence: US)
  Receive Date: 20180406
  Receipt Date: 20180406
  Transmission Date: 20180711
  Serious: Yes (Other)
  Sender: FDA-Public Use
  Company Number: US-PROCTER+GAMBLE-GS18038427

PATIENT
  Age: 61 Year
  Sex: Female

DRUGS (1)
  1. PEPTO-BISMOL [Suspect]
     Active Substance: BISMUTH SUBSALICYLATE
     Indication: DYSPEPSIA
     Dosage: UNK
     Route: 048

REACTIONS (13)
  - Metabolic acidosis [Unknown]
  - Confusional state [Unknown]
  - Tremor [Recovered/Resolved]
  - Central nervous system lesion [Unknown]
  - Neurological decompensation [Unknown]
  - Encephalopathy [Unknown]
  - Clonus [Recovered/Resolved]
  - Renal tubular acidosis [Unknown]
  - Ataxia [Recovered/Resolved]
  - Hypokalaemia [Unknown]
  - Toxicity to various agents [Unknown]
  - Memory impairment [Recovering/Resolving]
  - Incorrect drug administration duration [Unknown]
